FAERS Safety Report 5430242-8 (Version None)
Quarter: 2007Q3

REPORT INFORMATION
  Report Type: 
  Country: None (occurrence: None)
  Receive Date: 20070731
  Receipt Date: 20070621
  Transmission Date: 20080115
  Serious: No
  Sender: FDA-Public Use
  Company Number: US200704003880

PATIENT
  Age: 44 Year
  Sex: Female

DRUGS (6)
  1. BYETTA [Suspect]
     Indication: TYPE 2 DIABETES MELLITUS
     Dosage: 5 UG, 2/D, SUBCUTAENOUS 10 UG, 2/D, SUBCUTANEOUS
     Route: 060
     Dates: start: 20050501, end: 20050601
  2. BYETTA [Suspect]
     Indication: TYPE 2 DIABETES MELLITUS
     Dosage: 5 UG, 2/D, SUBCUTAENOUS 10 UG, 2/D, SUBCUTANEOUS
     Route: 060
     Dates: start: 20050601
  3. EXENATIDE PEN, DISPOSABLE DEVICE (EXENATIDE PEN) [Concomitant]
  4. HUMALOG [Concomitant]
  5. LANTUS [Concomitant]
  6. METFORMIN HCL [Concomitant]

REACTIONS (2)
  - ARTHRITIS [None]
  - CARPAL TUNNEL SYNDROME [None]
